FAERS Safety Report 4650602-2 (Version None)
Quarter: 2005Q2

REPORT INFORMATION
  Report Type: 
  Country: None (occurrence: None)
  Receive Date: 20050428
  Receipt Date: 20050428
  Transmission Date: 20051028
  Serious: No
  Sender: FDA-Public Use
  Company Number: None

PATIENT
  Sex: Female
  Weight: 95.1 kg

DRUGS (3)
  1. DAUNORUBICIN [Suspect]
     Indication: ACUTE MYELOID LEUKAEMIA
     Dosage: 90 MG/M2/DAY, IV DAYS 1-3
     Route: 042
     Dates: start: 20050413
  2. CYTARABINE [Suspect]
     Dosage: 100 MG/M2/DAY, IV, DAYS 1-7
     Route: 042
  3. GM-CSF [Suspect]
     Dosage: AT 250 MCG/M2 TO NEXT VIAL SIZE, ANC }/= TO 1,000

REACTIONS (3)
  - COLITIS [None]
  - DIARRHOEA [None]
  - NEUTROPENIA [None]
